FAERS Safety Report 9664592 (Version 2)
Quarter: 2013Q4

REPORT INFORMATION
  Report Type: Spontaneous
  Country: JP (occurrence: JP)
  Receive Date: 20131101
  Receipt Date: 20131107
  Transmission Date: 20140711
  Serious: Yes (Other)
  Sender: FDA-Public Use
  Company Number: JP-BRISTOL-MYERS SQUIBB COMPANY-19710920

PATIENT
  Age: 74 Year
  Sex: Male

DRUGS (1)
  1. TAXOL INJ [Suspect]
     Route: 042

REACTIONS (1)
  - Cerebral infarction [Recovering/Resolving]
